FAERS Safety Report 13554817 (Version 10)
Quarter: 2019Q4

REPORT INFORMATION
  Report Type: Report from Study
  Country: US (occurrence: US)
  Receive Date: 20170517
  Receipt Date: 20191209
  Transmission Date: 20200122
  Serious: Yes (Hospitalization, Other)
  Sender: FDA-Public Use
  Company Number: US-ACTELION-A-NJ2016-142570

PATIENT
  Age: 72 Year
  Sex: Female

DRUGS (27)
  1. OPSUMIT [Suspect]
     Active Substance: MACITENTAN
     Indication: PULMONARY ARTERIAL HYPERTENSION
     Dosage: 10 MG, QD
     Route: 048
     Dates: start: 20121012
  2. SIMVASTATIN. [Concomitant]
     Active Substance: SIMVASTATIN
     Dosage: 40 MG, QD
  3. ACETAMINOPHEN. [Concomitant]
     Active Substance: ACETAMINOPHEN
  4. LASIX [Concomitant]
     Active Substance: FUROSEMIDE
     Dosage: 40 MG, BID
  5. TEMAZEPAM. [Concomitant]
     Active Substance: TEMAZEPAM
  6. FOSAMAX [Concomitant]
     Active Substance: ALENDRONATE SODIUM
  7. PERFOROMIST [Concomitant]
     Active Substance: FORMOTEROL FUMARATE DIHYDRATE
  8. AFRIN [Suspect]
     Active Substance: OXYMETAZOLINE
     Indication: PRODUCT USED FOR UNKNOWN INDICATION
     Route: 055
  9. DIGOXIN. [Concomitant]
     Active Substance: DIGOXIN
     Dosage: 125 MCG, QD
  10. ALBUTEROL SULFATE. [Concomitant]
     Active Substance: ALBUTEROL SULFATE
  11. BROVANA [Concomitant]
     Active Substance: ARFORMOTEROL TARTRATE
  12. WARFARIN [Suspect]
     Active Substance: WARFARIN
     Indication: PRODUCT USED FOR UNKNOWN INDICATION
     Route: 048
  13. XANAX [Concomitant]
     Active Substance: ALPRAZOLAM
     Dosage: 2 MG, UNK
  14. ADVAIR HFA [Concomitant]
     Active Substance: FLUTICASONE PROPIONATE\SALMETEROL XINAFOATE
  15. SPIRIVA [Concomitant]
     Active Substance: TIOTROPIUM BROMIDE MONOHYDRATE
  16. FLUTICASONE. [Suspect]
     Active Substance: FLUTICASONE
     Indication: PRODUCT USED FOR UNKNOWN INDICATION
     Route: 055
  17. PROZAC [Concomitant]
     Active Substance: FLUOXETINE HYDROCHLORIDE
     Dosage: 40 MG, UNK
  18. SINGULAIR [Concomitant]
     Active Substance: MONTELUKAST SODIUM
  19. OPSUMIT [Suspect]
     Active Substance: MACITENTAN
     Dosage: 10 MG, QD
     Route: 048
     Dates: start: 20141104
  20. DIGOXIN. [Concomitant]
     Active Substance: DIGOXIN
     Dosage: 0.25 MG, UNK
  21. SIMVASTATIN. [Concomitant]
     Active Substance: SIMVASTATIN
     Dosage: 80 MG, UNK
  22. CARVEDILOL. [Concomitant]
     Active Substance: CARVEDILOL
     Dosage: 6.25 MG, BID
  23. ALDACTONE [Concomitant]
     Active Substance: SPIRONOLACTONE
  24. FERROUS SULFATE. [Concomitant]
     Active Substance: FERROUS SULFATE
  25. LOSARTAN POTASSSIUM [Concomitant]
     Dosage: 50 MG, QD
  26. VENTOLIN [Concomitant]
     Active Substance: ALBUTEROL SULFATE
  27. NEURONTIN [Concomitant]
     Active Substance: GABAPENTIN

REACTIONS (21)
  - Pulmonary oedema [Recovering/Resolving]
  - Neuropathy peripheral [Unknown]
  - Oedema peripheral [Recovering/Resolving]
  - Fluid retention [Recovered/Resolved]
  - Respiratory distress [Unknown]
  - Sinusitis [Unknown]
  - International normalised ratio increased [Recovered/Resolved]
  - Cough [Recovering/Resolving]
  - Fatigue [Recovered/Resolved]
  - Mouth haemorrhage [Recovered/Resolved]
  - Productive cough [Not Recovered/Not Resolved]
  - Haemorrhage [Recovered/Resolved]
  - Haemoglobin decreased [Unknown]
  - Hypotension [Recovering/Resolving]
  - Pain in extremity [Unknown]
  - Cardiac failure congestive [Recovering/Resolving]
  - Contusion [Recovered/Resolved]
  - Myocardial infarction [Recovering/Resolving]
  - Influenza [Not Recovered/Not Resolved]
  - Dyspnoea [Recovering/Resolving]
  - Epistaxis [Unknown]

NARRATIVE: CASE EVENT DATE: 20160829
